FAERS Safety Report 25706678 (Version 1)
Quarter: 2025Q3

REPORT INFORMATION
  Report Type: Spontaneous
  Country: US (occurrence: US)
  Receive Date: 20250820
  Receipt Date: 20250820
  Transmission Date: 20251020
  Serious: No
  Sender: SANOFI AVENTIS
  Company Number: US-SA-2025SA246283

PATIENT
  Age: 63 Year

DRUGS (1)
  1. THYROGEN [Suspect]
     Active Substance: THYROTROPIN ALFA
     Indication: Brain neoplasm malignant
     Dosage: 1.8 MG, QD
     Route: 030

REACTIONS (1)
  - Off label use [Unknown]
